FAERS Safety Report 7825228 (Version 2)
Quarter: 2014Q2

REPORT INFORMATION
  Report Type: Spontaneous
  Country: US (occurrence: US)
  Receive Date: 20110224
  Receipt Date: 20140403
  Transmission Date: 20141212
  Serious: Yes (Other)
  Sender: FDA-Public Use
  Company Number: US-ROCHE-738856

PATIENT
  Age: 18 Year
  Sex: Male
  Weight: 68 kg

DRUGS (1)
  1. ACCUTANE [Suspect]
     Indication: ACNE
     Route: 065
     Dates: start: 19920601, end: 1994

REACTIONS (9)
  - Colitis ulcerative [Unknown]
  - Gastrointestinal injury [Unknown]
  - Emotional distress [Unknown]
  - Suicidal ideation [Unknown]
  - Anxiety [Unknown]
  - Inflammatory bowel disease [Unknown]
  - Large intestine polyp [Unknown]
  - Depression [Unknown]
  - Back pain [Unknown]
